FAERS Safety Report 7432730-1 (Version None)
Quarter: 2011Q2

REPORT INFORMATION
  Report Type: 
  Country: None (occurrence: None)
  Receive Date: 20110422
  Receipt Date: 20110413
  Transmission Date: 20111010
  Serious: Yes (Hospitalization)
  Sender: FDA-Public Use
  Company Number: A0908208A

PATIENT
  Age: 37 Year
  Sex: Male
  Weight: 86.7 kg

DRUGS (11)
  1. LASIX [Concomitant]
     Dosage: 20MG PER DAY
     Route: 048
  2. GABAPENTIN [Concomitant]
     Dosage: 300MG THREE TIMES PER DAY
     Route: 048
  3. CYCLOBENZAPRINE [Concomitant]
     Dosage: 5MG TWICE PER DAY
     Route: 048
  4. WARFARIN SODIUM [Concomitant]
     Dosage: 4MG PER DAY
     Route: 048
  5. FLOLAN [Suspect]
     Route: 065
     Dates: start: 20100506
  6. ZOLPIDEM [Concomitant]
     Dosage: 5MG AT NIGHT
     Route: 048
  7. LIPITOR [Concomitant]
     Dosage: 40MG AT NIGHT
     Route: 048
  8. ZOFRAN [Concomitant]
     Dosage: 4MG FOUR TIMES PER DAY
     Route: 048
  9. KLONOPIN [Concomitant]
     Dosage: 1MG TWICE PER DAY
     Route: 048
  10. ATIVAN [Concomitant]
     Dosage: 5MG AT NIGHT
     Route: 048
  11. ACETAMINOPHEN [Concomitant]
     Dosage: 325MG SIX TIMES PER DAY
     Route: 048

REACTIONS (14)
  - PARAESTHESIA [None]
  - CEREBROVASCULAR ACCIDENT [None]
  - INTERVERTEBRAL DISC PROTRUSION [None]
  - NAUSEA [None]
  - BACK PAIN [None]
  - PAIN IN EXTREMITY [None]
  - MOVEMENT DISORDER [None]
  - BODY TEMPERATURE INCREASED [None]
  - PNEUMONIA [None]
  - HYPOAESTHESIA [None]
  - DYSPNOEA [None]
  - INTERNATIONAL NORMALISED RATIO DECREASED [None]
  - SEPSIS [None]
  - HEADACHE [None]
